FAERS Safety Report 17155670 (Version 2)
Quarter: 2020Q1

REPORT INFORMATION
  Report Type: Spontaneous
  Country: IE (occurrence: IE)
  Receive Date: 20191215
  Receipt Date: 20200203
  Transmission Date: 20200409
  Serious: Yes (Other)
  Sender: FDA-Public Use
  Company Number: IE-009507513-1912IRL004985

PATIENT
  Age: 67 Year
  Sex: Male

DRUGS (3)
  1. SINEMET PLUS 25MG/100MG TABLETS [Suspect]
     Active Substance: CARBIDOPA\LEVODOPA
     Dosage: OVAL TABLET
     Route: 048
     Dates: start: 20191130
  2. SINEMET PLUS 25MG/100MG TABLETS [Suspect]
     Active Substance: CARBIDOPA\LEVODOPA
     Dosage: ONE 25MG/100MG TABLET TWICE A DAY
     Route: 048
     Dates: start: 201703
  3. BETMIGA [Concomitant]
     Active Substance: MIRABEGRON

REACTIONS (4)
  - Tremor [Unknown]
  - Insomnia [Unknown]
  - Agitation [Unknown]
  - Parkinson^s disease [Unknown]

NARRATIVE: CASE EVENT DATE: 2019
